FAERS Safety Report 9531559 (Version 1)
Quarter: 2013Q3

REPORT INFORMATION
  Report Type: Spontaneous
  Country: US (occurrence: None)
  Receive Date: 20130917
  Receipt Date: 20130917
  Transmission Date: 20140515
  Serious: Yes (Other)
  Sender: FDA-Public Use
  Company Number: None

PATIENT
  Age: 29 Year
  Sex: Male

DRUGS (1)
  1. REGORAFENIB [Suspect]
     Dosage: 160MG AS PER PROTOCOL  PO  D4 - 10  +  D18 - 24?
     Route: 048
     Dates: start: 20130405, end: 20130829

REACTIONS (1)
  - Pneumonitis [None]
